FAERS Safety Report 16978420 (Version 2)
Quarter: 2020Q2

REPORT INFORMATION
  Report Type: Spontaneous
  Country: US (occurrence: US)
  Receive Date: 20191031
  Receipt Date: 20200409
  Transmission Date: 20200713
  Serious: No
  Sender: FDA-Public Use
  Company Number: US-TEVA-2019-US-1131280

PATIENT
  Age: 58 Year
  Sex: Male

DRUGS (9)
  1. BUTALBITAL [Concomitant]
     Active Substance: BUTALBITAL
  2. LISINOPRIL. [Concomitant]
     Active Substance: LISINOPRIL
  3. GABAPENTIN. [Concomitant]
     Active Substance: GABAPENTIN
  4. NAPROXEN. [Concomitant]
     Active Substance: NAPROXEN
  5. COPAXONE [Suspect]
     Active Substance: GLATIRAMER ACETATE
     Indication: MULTIPLE SCLEROSIS
     Dosage: 40MG THRICE A WEEK
     Route: 058
     Dates: start: 20170109
  6. METFORMIN [Concomitant]
     Active Substance: METFORMIN HYDROCHLORIDE
  7. AMITRIPTYLLINE [Concomitant]
     Active Substance: AMITRIPTYLINE
  8. MONTELUKAST [Concomitant]
     Active Substance: MONTELUKAST SODIUM
  9. ATORVASTATIN [Concomitant]
     Active Substance: ATORVASTATIN

REACTIONS (2)
  - Back pain [Not Recovered/Not Resolved]
  - Pain in extremity [Not Recovered/Not Resolved]

NARRATIVE: CASE EVENT DATE: 202002
